FAERS Safety Report 18283056 (Version 2)
Quarter: 2023Q4

REPORT INFORMATION
  Report Type: Spontaneous
  Country: CA (occurrence: None)
  Receive Date: 20200918
  Receipt Date: 20231207
  Transmission Date: 20240109
  Serious: Yes (Other)
  Sender: FDA-Public Use
  Company Number: 2020SF17260

PATIENT
  Age: 60 Year
  Sex: Female

DRUGS (14)
  1. DURVALUMAB [Suspect]
     Active Substance: DURVALUMAB
     Indication: Pancreatic carcinoma metastatic
     Dosage: 1500 MG, UNK, (1 EVERY 4 WEEKS)1500.0MG UNKNOWN
     Route: 041
  2. TREMELIMUMAB [Suspect]
     Active Substance: TREMELIMUMAB
     Indication: Pancreatic carcinoma metastatic
     Dosage: 75 MG, UNK, (1 EVERY 4 WEEKS)75.0MG UNKNOWN
     Route: 041
  3. ABRAXANE [Suspect]
     Active Substance: PACLITAXEL
     Indication: Pancreatic carcinoma metastatic
     Dosage: 207.5 MG, UNK, (3 EVERY 28 DAYS)207.5MG UNKNOWN
     Route: 041
  4. GEMCITABINE HYDROCHLORIDE [Suspect]
     Active Substance: GEMCITABINE HYDROCHLORIDE
     Indication: Pancreatic carcinoma metastatic
     Dosage: 1660 MG ,UNK, (3 EVERY 28 DAYS)1660.0MG UNKNOWN
     Route: 041
  5. ASPIRIN [Concomitant]
     Active Substance: ASPIRIN
  6. DOCUSATE SODIUM [Concomitant]
     Active Substance: DOCUSATE SODIUM
     Indication: Constipation
  7. LEVOCABASTINE HYDROCHLORIDE [Concomitant]
     Active Substance: LEVOCABASTINE HYDROCHLORIDE
     Indication: Nasal congestion
  8. OXAZEPAM [Concomitant]
     Active Substance: OXAZEPAM
     Indication: Insomnia
  9. OXYCODONE [Concomitant]
     Active Substance: OXYCODONE
     Indication: Back pain
  10. PANTOPRAZOLE [Concomitant]
     Active Substance: PANTOPRAZOLE
     Indication: Dyspepsia
  11. RANITIDINE [Concomitant]
     Active Substance: RANITIDINE
     Indication: Dyspepsia
  12. ROSUVASTATIN [Concomitant]
     Active Substance: ROSUVASTATIN
     Indication: Hypercholesterolaemia
  13. SPIRONOLACTONE [Concomitant]
     Active Substance: SPIRONOLACTONE
     Indication: Generalised oedema
  14. VENLAFAXINE [Concomitant]
     Active Substance: VENLAFAXINE HYDROCHLORIDE
     Indication: Depression

REACTIONS (1)
  - Hepatic function abnormal [Not Recovered/Not Resolved]
